FAERS Safety Report 17905152 (Version 3)
Quarter: 2021Q2

REPORT INFORMATION
  Report Type: Other
  Country: CA (occurrence: CA)
  Receive Date: 20200617
  Receipt Date: 20210430
  Transmission Date: 20210717
  Serious: Yes (Other)
  Sender: FDA-Public Use
  Company Number: CA-ROCHE-2039918

PATIENT
  Age: 24 Year
  Sex: Female

DRUGS (5)
  1. DOXILAMINA [Concomitant]
  2. MATERNA [Concomitant]
     Active Substance: MINERALS\VITAMINS
  3. METHYLPREDNISOLONE. [Concomitant]
     Active Substance: METHYLPREDNISOLONE
     Indication: PREMEDICATION
     Route: 042
  4. OCREVUS [Suspect]
     Active Substance: OCRELIZUMAB
     Indication: PRODUCT USED FOR UNKNOWN INDICATION
     Dosage: 1ST DOSE, TWO WEEKS
     Route: 042
     Dates: start: 20171207
  5. ACETAMINOPHEN. [Concomitant]
     Active Substance: ACETAMINOPHEN
     Indication: PREMEDICATION
     Route: 048

REACTIONS (8)
  - Heart rate increased [Unknown]
  - Haematochezia [Unknown]
  - Rash [Recovered/Resolved]
  - Clostridium test positive [Recovered/Resolved]
  - Fatigue [Not Recovered/Not Resolved]
  - Pharyngeal hypoaesthesia [Recovered/Resolved]
  - Infusion related reaction [Recovered/Resolved]
  - Headache [Not Recovered/Not Resolved]

NARRATIVE: CASE EVENT DATE: 20171207
